FAERS Safety Report 24578044 (Version 2)
Quarter: 2024Q4

REPORT INFORMATION
  Report Type: Report from Study
  Country: AT (occurrence: AT)
  Receive Date: 20241104
  Receipt Date: 20241107
  Transmission Date: 20250115
  Serious: Yes (Hospitalization)
  Sender: ABBVIE
  Company Number: AT-ABBVIE-5987008

PATIENT
  Age: 71 Year
  Sex: Male

DRUGS (1)
  1. FOSCARBIDOPA\FOSLEVODOPA [Suspect]
     Active Substance: FOSCARBIDOPA\FOSLEVODOPA
     Indication: Parkinson^s disease
     Dosage: -24 HOUR THERAPY DURATION CR 0.51 ML/H CRHIGH 0.54 ML/H CRLOW 0.24 ML/H BOLUS 0.2 ML
     Route: 058
     Dates: start: 20240930

REACTIONS (4)
  - Bronchitis [Unknown]
  - Urinary tract infection [Unknown]
  - Infusion site erythema [Not Recovered/Not Resolved]
  - Infusion site induration [Unknown]

NARRATIVE: CASE EVENT DATE: 20240101
